FAERS Safety Report 9204037 (Version 1)
Quarter: 2013Q2

REPORT INFORMATION
  Report Type: Spontaneous
  Country: US (occurrence: US)
  Receive Date: 20130402
  Receipt Date: 20130402
  Transmission Date: 20140414
  Serious: No
  Sender: FDA-Public Use
  Company Number: US-BAYER-2013-039457

PATIENT
  Age: 28 Year
  Sex: Female

DRUGS (4)
  1. BETASERON [Suspect]
     Dosage: 0.3 MG, QOD
     Route: 058
  2. NORTRIPTYLIN [Concomitant]
     Dosage: 25 MG, UNK
  3. ZOLPIDEM [Concomitant]
     Dosage: 10 MG, UNK
  4. TYLENOL [PARACETAMOL] [Concomitant]
     Dosage: 325 MG, UNK

REACTIONS (1)
  - Contusion [Unknown]
